FAERS Safety Report 10267543 (Version 2)
Quarter: 2014Q3

REPORT INFORMATION
  Report Type: Spontaneous
  Country: US (occurrence: US)
  Receive Date: 20140630
  Receipt Date: 20140728
  Transmission Date: 20150326
  Serious: Yes (Other)
  Sender: FDA-Public Use
  Company Number: US-PFIZER INC-2014175657

PATIENT
  Sex: Male

DRUGS (6)
  1. METFORMIN [Suspect]
     Active Substance: METFORMIN HYDROCHLORIDE
     Dosage: 1000 MG, 2X/DAY
  2. GLIPIZIDE ER [Suspect]
     Active Substance: GLIPIZIDE
     Dosage: 10 MG, 2X/DAY
  3. GLIPIZIDE ER [Interacting]
     Active Substance: GLIPIZIDE
     Dosage: 5 MG, 2X/DAY
  4. VICTOZA [Interacting]
     Active Substance: LIRAGLUTIDE
     Dosage: 0.6 MG, DAILY
     Dates: start: 20140416
  5. VICTOZA [Interacting]
     Active Substance: LIRAGLUTIDE
     Dosage: 1.2 MG, DAILY
  6. VICTOZA [Interacting]
     Active Substance: LIRAGLUTIDE
     Dosage: 1.8 MG, DAILY

REACTIONS (2)
  - Potentiating drug interaction [Recovered/Resolved]
  - Blood glucose decreased [Recovered/Resolved]

NARRATIVE: CASE EVENT DATE: 201404
